FAERS Safety Report 10965841 (Version 2)
Quarter: 2015Q2

REPORT INFORMATION
  Report Type: Spontaneous
  Country: JP (occurrence: JP)
  Receive Date: 20150330
  Receipt Date: 20150406
  Transmission Date: 20150821
  Serious: Yes (Other)
  Sender: FDA-Public Use
  Company Number: JP-UCBSA-2015010008

PATIENT
  Age: 80 Year
  Sex: Male

DRUGS (5)
  1. ROPINIROLE HYDROCHLORIDE. [Concomitant]
     Active Substance: ROPINIROLE HYDROCHLORIDE
     Indication: PARKINSON^S DISEASE
     Dosage: 14 MG DAILY
     Dates: end: 20150210
  2. NEUPRO [Suspect]
     Active Substance: ROTIGOTINE
     Dosage: 10 MG, ONCE DAILY (QD)
     Route: 062
     Dates: start: 201502, end: 20150317
  3. LEVODOPA/CARBIDOPA [Concomitant]
     Active Substance: CARBIDOPA\LEVODOPA
     Indication: PARKINSON^S DISEASE
     Dosage: 600MG DAILY
     Dates: end: 20150317
  4. ROPINIROLE HYDROCHLORIDE. [Concomitant]
     Active Substance: ROPINIROLE HYDROCHLORIDE
     Dosage: 8MG DAILY
     Dates: start: 20150211, end: 201502
  5. NEUPRO [Suspect]
     Active Substance: ROTIGOTINE
     Indication: PARKINSON^S DISEASE
     Dosage: 6 MG, ONCE DAILY (QD)
     Route: 062
     Dates: start: 20150211, end: 201502

REACTIONS (2)
  - Hyponatraemia [Not Recovered/Not Resolved]
  - Drug dose titration not performed [Unknown]

NARRATIVE: CASE EVENT DATE: 2015
